FAERS Safety Report 20444419 (Version 10)
Quarter: 2022Q3

REPORT INFORMATION
  Report Type: Report from Study
  Country: CN (occurrence: None)
  Receive Date: 20220208
  Receipt Date: 20220715
  Transmission Date: 20221026
  Serious: Yes (Life-Threatening, Hospitalization)
  Sender: FDA-Public Use
  Company Number: 2022A052410

PATIENT
  Age: 26467 Day
  Sex: Male

DRUGS (29)
  1. DURVALUMAB [Suspect]
     Active Substance: DURVALUMAB
     Indication: Non-small cell lung cancer
     Route: 042
     Dates: start: 20220120, end: 20220120
  2. DURVALUMAB [Suspect]
     Active Substance: DURVALUMAB
     Indication: Non-small cell lung cancer
     Route: 042
     Dates: start: 20220127, end: 20220127
  3. DURVALUMAB [Suspect]
     Active Substance: DURVALUMAB
     Indication: Non-small cell lung cancer
     Route: 042
     Dates: start: 20220303, end: 20220303
  4. DURVALUMAB [Suspect]
     Active Substance: DURVALUMAB
     Indication: Non-small cell lung cancer
     Route: 042
     Dates: start: 20220310, end: 20220310
  5. DURVALUMAB [Suspect]
     Active Substance: DURVALUMAB
     Indication: Non-small cell lung cancer
     Route: 042
     Dates: start: 20220408, end: 20220408
  6. DURVALUMAB [Suspect]
     Active Substance: DURVALUMAB
     Indication: Non-small cell lung cancer
     Route: 042
     Dates: start: 20220415, end: 20220415
  7. CARBOPLATIN [Suspect]
     Active Substance: CARBOPLATIN
     Indication: Non-small cell lung cancer
     Dosage: 5 AUC EVERY THREE WEEKS
     Route: 042
     Dates: start: 20220120, end: 20220121
  8. CARBOPLATIN [Suspect]
     Active Substance: CARBOPLATIN
     Indication: Non-small cell lung cancer
     Dosage: 5 AUC EVERY THREE WEEKS
     Route: 042
     Dates: start: 20220303, end: 20220303
  9. CARBOPLATIN [Suspect]
     Active Substance: CARBOPLATIN
     Indication: Non-small cell lung cancer
     Dosage: 5 AUC EVERY THREE WEEKS
     Route: 042
     Dates: start: 20220408, end: 20220408
  10. GEMCITABINE [Suspect]
     Active Substance: GEMCITABINE
     Indication: Non-small cell lung cancer
     Route: 042
     Dates: start: 20220120, end: 20220120
  11. GEMCITABINE [Suspect]
     Active Substance: GEMCITABINE
     Indication: Non-small cell lung cancer
     Route: 042
     Dates: start: 20220127, end: 20220127
  12. GEMCITABINE [Suspect]
     Active Substance: GEMCITABINE
     Indication: Non-small cell lung cancer
     Route: 042
     Dates: start: 20220303, end: 20220303
  13. GEMCITABINE [Suspect]
     Active Substance: GEMCITABINE
     Indication: Non-small cell lung cancer
     Route: 042
     Dates: start: 20220310, end: 20220310
  14. GEMCITABINE [Suspect]
     Active Substance: GEMCITABINE
     Indication: Non-small cell lung cancer
     Route: 042
     Dates: start: 20220408, end: 20220408
  15. GEMCITABINE [Suspect]
     Active Substance: GEMCITABINE
     Indication: Non-small cell lung cancer
     Route: 042
     Dates: start: 20220415, end: 20220415
  16. RECOMBINANT HUMAN GRANULOCYTE COLONY-STIMULATING FACTOR INJECTION [Concomitant]
     Indication: White blood cell count decreased
     Dosage: 150UG/INHAL DAILY
     Route: 058
     Dates: start: 20220125, end: 20220127
  17. RECOMBINANT HUMAN GRANULOCYTE COLONY-STIMULATING FACTOR INJECTION [Concomitant]
     Indication: Neutrophil count decreased
     Dosage: 150UG/INHAL DAILY
     Route: 058
     Dates: start: 20220125, end: 20220127
  18. RECOMBINANT HUMAN GRANULOCYTE COLONY-STIMULATING FACTOR INJECTION [Concomitant]
     Indication: White blood cell count decreased
     Dosage: 150UG/INHAL DAILY
     Route: 058
     Dates: start: 20220125, end: 20220127
  19. PALONOSETRON HYDROCHLORIDE [Concomitant]
     Active Substance: PALONOSETRON HYDROCHLORIDE
     Indication: Prophylaxis of nausea and vomiting
     Route: 042
     Dates: start: 20220120, end: 20220120
  20. PALONOSETRON HYDROCHLORIDE [Concomitant]
     Active Substance: PALONOSETRON HYDROCHLORIDE
     Indication: Nausea
     Route: 042
     Dates: start: 20220120, end: 20220120
  21. PALONOSETRON HYDROCHLORIDE [Concomitant]
     Active Substance: PALONOSETRON HYDROCHLORIDE
     Indication: Prophylaxis of nausea and vomiting
     Route: 042
     Dates: start: 20220121, end: 20220128
  22. PALONOSETRON HYDROCHLORIDE [Concomitant]
     Active Substance: PALONOSETRON HYDROCHLORIDE
     Indication: Nausea
     Route: 042
     Dates: start: 20220121, end: 20220128
  23. RANITIDINE HYDROCHLORIDE INJECTION [Concomitant]
     Indication: Protein total
     Route: 042
     Dates: start: 20220120, end: 20220120
  24. RANITIDINE HYDROCHLORIDE INJECTION [Concomitant]
     Indication: Inhibin A
     Route: 042
     Dates: start: 20220120, end: 20220120
  25. RANITIDINE HYDROCHLORIDE INJECTION [Concomitant]
     Indication: Protein total
     Route: 042
     Dates: start: 20220121, end: 20220128
  26. RANITIDINE HYDROCHLORIDE INJECTION [Concomitant]
     Indication: Inhibin A
     Route: 042
     Dates: start: 20220121, end: 20220128
  27. VITAMIN B6 [Concomitant]
     Active Substance: PYRIDOXINE HYDROCHLORIDE
     Indication: Vitamin supplementation
     Route: 042
     Dates: start: 20220120, end: 20220128
  28. ASCORBIC ACID [Concomitant]
     Active Substance: ASCORBIC ACID
     Indication: Vitamin supplementation
     Route: 042
     Dates: start: 20220120, end: 20220128
  29. GLYCEROL ENEMA [Concomitant]
     Indication: Constipation
     Dosage: 40.0ML ONCE/SINGLE ADMINISTRATION
     Route: 054
     Dates: start: 20220123, end: 20220123

REACTIONS (1)
  - Myelosuppression [Recovered/Resolved]

NARRATIVE: CASE EVENT DATE: 20220125
